FAERS Safety Report 24614970 (Version 1)
Quarter: 2024Q4

REPORT INFORMATION
  Report Type: Report from Study
  Country: US (occurrence: US)
  Receive Date: 20241113
  Receipt Date: 20241113
  Transmission Date: 20250115
  Serious: Yes (Other)
  Sender: ABBVIE
  Company Number: US-ABBVIE-5999647

PATIENT
  Age: 73 Year
  Sex: Female

DRUGS (1)
  1. VENCLEXTA [Suspect]
     Active Substance: VENETOCLAX
     Indication: Chronic lymphocytic leukaemia
     Route: 048
     Dates: start: 202406

REACTIONS (5)
  - Electrocauterisation [Unknown]
  - Epistaxis [Unknown]
  - Rhinorrhoea [Unknown]
  - Raynaud^s phenomenon [Unknown]
  - Migraine [Unknown]

NARRATIVE: CASE EVENT DATE: 20240101
